FAERS Safety Report 14346058 (Version 1)
Quarter: 2018Q1

REPORT INFORMATION
  Report Type: Spontaneous
  Country: US (occurrence: US)
  Receive Date: 20180103
  Receipt Date: 20180103
  Transmission Date: 20180509
  Serious: No
  Sender: FDA-Public Use
  Company Number: US-PFIZER INC-2018001435

PATIENT
  Age: 51 Year
  Sex: Male
  Weight: 134 kg

DRUGS (1)
  1. VENLAFAXINE HCL [Suspect]
     Active Substance: VENLAFAXINE HYDROCHLORIDE
     Indication: POST-TRAUMATIC STRESS DISORDER
     Dosage: 100 MG, 2X/DAY
     Route: 048
     Dates: start: 20171110, end: 201712

REACTIONS (7)
  - Ocular hyperaemia [Unknown]
  - Hypersensitivity [Unknown]
  - Disturbance in attention [Unknown]
  - Intentional product misuse [Unknown]
  - Feeling abnormal [Unknown]
  - Dizziness [Unknown]
  - Eye irritation [Unknown]

NARRATIVE: CASE EVENT DATE: 201712
